FAERS Safety Report 17437923 (Version 1)
Quarter: 2020Q1

REPORT INFORMATION
  Report Type: Report from Study
  Country: None (occurrence: US)
  Receive Date: 20200219
  Receipt Date: 20200219
  Transmission Date: 20200409
  Serious: Yes (Other)
  Sender: FDA-Public Use
  Company Number: US-ABBVIE-19K-163-2903914-00

PATIENT
  Age: 57 Year
  Sex: Male

DRUGS (1)
  1. HUMIRA [Suspect]
     Active Substance: ADALIMUMAB
     Indication: ANKYLOSING SPONDYLITIS
     Route: 058

REACTIONS (10)
  - Urinary tract infection [Unknown]
  - Road traffic accident [Unknown]
  - Pain in extremity [Unknown]
  - Gait inability [Unknown]
  - Road traffic accident [Unknown]
  - Spinal cord injury [Unknown]
  - Spinal fracture [Unknown]
  - Spinal fracture [Unknown]
  - Adverse drug reaction [Unknown]
  - Back injury [Unknown]

NARRATIVE: CASE EVENT DATE: 2008
